FAERS Safety Report 7905401-2 (Version None)
Quarter: 2011Q4

REPORT INFORMATION
  Report Type: 
  Country: None (occurrence: None)
  Receive Date: 20111109
  Receipt Date: 20111102
  Transmission Date: 20120403
  Serious: Yes (Hospitalization, Disabling, Other)
  Sender: FDA-Public Use
  Company Number: US-MERCK-1107USA03580

PATIENT
  Age: 64 Year
  Sex: Female
  Weight: 80 kg

DRUGS (12)
  1. FOSAMAX [Suspect]
     Route: 048
     Dates: start: 20001231, end: 20020401
  2. ALENDRONATE SODIUM [Suspect]
     Route: 048
     Dates: start: 20091109
  3. FOSAMAX [Suspect]
     Route: 048
     Dates: start: 20000408, end: 20001204
  4. ALENDRONATE SODIUM [Suspect]
     Route: 048
     Dates: start: 20090813
  5. FOSAMAX [Suspect]
     Route: 048
     Dates: start: 20020502, end: 20080324
  6. FOSAMAX [Suspect]
     Indication: OSTEOPENIA
     Route: 048
     Dates: start: 19980101, end: 20100201
  7. FOSAMAX [Suspect]
     Route: 048
     Dates: start: 20001231, end: 20020401
  8. FOSAMAX [Suspect]
     Route: 048
     Dates: start: 20000408, end: 20001204
  9. FOSAMAX [Suspect]
     Route: 048
     Dates: start: 20020502, end: 20080324
  10. FOSAMAX [Suspect]
     Indication: OSTEOPOROSIS
     Route: 048
     Dates: start: 19980101, end: 20100201
  11. FOSAMAX [Suspect]
     Route: 065
     Dates: start: 20080607
  12. ALENDRONATE SODIUM [Suspect]
     Route: 048
     Dates: start: 20080906, end: 20090519

REACTIONS (35)
  - OSTEOARTHRITIS [None]
  - NAUSEA [None]
  - ANXIETY [None]
  - PRESYNCOPE [None]
  - DIZZINESS [None]
  - HAEMATEMESIS [None]
  - CARDIOMEGALY [None]
  - CORONARY ARTERY DISEASE [None]
  - MALIGNANT MELANOMA [None]
  - GASTROOESOPHAGEAL REFLUX DISEASE [None]
  - DEVICE FAILURE [None]
  - DYSLIPIDAEMIA [None]
  - ESSENTIAL HYPERTENSION [None]
  - PALPITATIONS [None]
  - GAIT DISTURBANCE [None]
  - FALL [None]
  - VITAMIN D DEFICIENCY [None]
  - INFECTION [None]
  - HIATUS HERNIA [None]
  - VOMITING [None]
  - OESTROGEN DEFICIENCY [None]
  - CHEST DISCOMFORT [None]
  - DYSTHYMIC DISORDER [None]
  - PNEUMONIA ASPIRATION [None]
  - ATRIAL FIBRILLATION [None]
  - HYPERLIPIDAEMIA [None]
  - LIMB ASYMMETRY [None]
  - LACERATION [None]
  - ARTHRALGIA [None]
  - FEMUR FRACTURE [None]
  - HAEMORRHAGIC ANAEMIA [None]
  - HYPERCHOLESTEROLAEMIA [None]
  - FRACTURE NONUNION [None]
  - DEPRESSION [None]
  - CHEST PAIN [None]
